FAERS Safety Report 11330977 (Version 1)
Quarter: 2015Q3

REPORT INFORMATION
  Report Type: Spontaneous
  Country: CH (occurrence: CH)
  Receive Date: 20150803
  Receipt Date: 20150803
  Transmission Date: 20151125
  Serious: Yes (Hospitalization)
  Sender: FDA-Public Use
  Company Number: CH-TEVA-581962ISR

PATIENT
  Age: 83 Year
  Sex: Female
  Weight: 45 kg

DRUGS (6)
  1. GLIMERYL-MEPHA [Suspect]
     Active Substance: GLIMEPIRIDE
     Dosage: 4 MILLIGRAM DAILY;
     Route: 048
     Dates: end: 20150628
  2. CARVEDILOL-MEPHA 25 [Suspect]
     Active Substance: CARVEDILOL
     Dosage: 50 MILLIGRAM DAILY; THERAPY START DATE NOT KNOWN; CONTINUING
     Route: 048
  3. TRIATEC [Concomitant]
     Active Substance: RAMIPRIL
     Dosage: 10 MILLIGRAM DAILY; CONTINUING
     Route: 048
  4. ASPRIN [Suspect]
     Active Substance: ASPIRIN
     Dosage: 100 MILLIGRAM DAILY; THERAPY START DATE NOT KNOWN; CONTINUING
     Route: 048
  5. AMLODIPINE [Concomitant]
     Active Substance: AMLODIPINE BESYLATE
     Dosage: 10 MILLIGRAM DAILY; CONTINUING
     Route: 048
  6. ATORVASTATIN PFIZER [Concomitant]
     Active Substance: ATORVASTATIN
     Dosage: 10 MILLIGRAM DAILY; CONTINUING
     Route: 048

REACTIONS (5)
  - Hypoglycaemia [Recovered/Resolved]
  - Somnolence [Recovered/Resolved]
  - Speech disorder [Recovered/Resolved]
  - Dysarthria [Recovered/Resolved]
  - Product used for unknown indication [Recovered/Resolved]

NARRATIVE: CASE EVENT DATE: 20150628
